FAERS Safety Report 25019015 (Version 1)
Quarter: 2025Q1

REPORT INFORMATION
  Report Type: Spontaneous
  Country: US (occurrence: US)
  Receive Date: 20250227
  Receipt Date: 20250227
  Transmission Date: 20250408
  Serious: No
  Sender: PURDUE
  Company Number: US-PURDUE-USA-2025-0315716

PATIENT
  Age: 72 Year
  Sex: Male

DRUGS (2)
  1. HYSINGLA ER [Suspect]
     Active Substance: HYDROCODONE BITARTRATE
     Indication: Musculoskeletal discomfort
     Route: 048
  2. XTAMPZA ER [Suspect]
     Active Substance: OXYCODONE
     Indication: Musculoskeletal discomfort
     Route: 065

REACTIONS (1)
  - Drug ineffective [Unknown]
